FAERS Safety Report 18857084 (Version 3)
Quarter: 2021Q1

REPORT INFORMATION
  Report Type: Report from Study
  Country: None (occurrence: US)
  Receive Date: 20210208
  Receipt Date: 20210317
  Transmission Date: 20210420
  Serious: Yes (Hospitalization, Other)
  Sender: FDA-Public Use
  Company Number: US-ABBVIE-21K-163-3762668-00

PATIENT
  Age: 67 Year
  Sex: Female
  Weight: 113.5 kg

DRUGS (26)
  1. GABAPENTIN. [Concomitant]
     Active Substance: GABAPENTIN
     Indication: TYPE 2 DIABETES MELLITUS
  2. ASPIRIN. [Concomitant]
     Active Substance: ASPIRIN
     Indication: HYPOTHYROIDISM
  3. TAMOXIFEN [Concomitant]
     Active Substance: TAMOXIFEN
     Indication: HYPOTHYROIDISM
  4. ALENDRONATE [Concomitant]
     Active Substance: ALENDRONATE SODIUM
     Indication: OSTEOPOROSIS
  5. SKYRIZI [Suspect]
     Active Substance: RISANKIZUMAB-RZAA
     Indication: PSORIASIS
     Dosage: 75MG/0.83 ML
     Route: 058
     Dates: start: 201910, end: 2019
  6. SKYRIZI [Suspect]
     Active Substance: RISANKIZUMAB-RZAA
     Route: 058
     Dates: start: 2019
  7. SYMBICORT [Concomitant]
     Active Substance: BUDESONIDE\FORMOTEROL FUMARATE DIHYDRATE
     Indication: HYPOTHYROIDISM
  8. NOVOLIN 70/30 [Concomitant]
     Active Substance: INSULIN HUMAN
     Indication: HYPOTHYROIDISM
  9. COVID?19 VACCINE [Concomitant]
     Indication: COVID-19 IMMUNISATION
     Dosage: PFIZER
     Route: 030
     Dates: start: 20210208, end: 20210208
  10. ASPIRIN. [Concomitant]
     Active Substance: ASPIRIN
     Indication: ANTICOAGULANT THERAPY
  11. PRAVASTATIN. [Concomitant]
     Active Substance: PRAVASTATIN
     Indication: BLOOD CHOLESTEROL INCREASED
  12. COVID?19 VACCINE [Concomitant]
     Dosage: PFIZER
     Route: 030
     Dates: start: 20210302, end: 20210302
  13. SKYRIZI [Suspect]
     Active Substance: RISANKIZUMAB-RZAA
     Route: 058
     Dates: start: 202102
  14. METFORMIN [Concomitant]
     Active Substance: METFORMIN HYDROCHLORIDE
     Indication: TYPE 2 DIABETES MELLITUS
  15. TAMOXIFEN [Concomitant]
     Active Substance: TAMOXIFEN
     Indication: BREAST CANCER
  16. ALENDRONATE [Concomitant]
     Active Substance: ALENDRONATE SODIUM
     Indication: HYPOTHYROIDISM
  17. SYMBICORT [Concomitant]
     Active Substance: BUDESONIDE\FORMOTEROL FUMARATE DIHYDRATE
     Indication: CHRONIC OBSTRUCTIVE PULMONARY DISEASE
  18. PRAVASTATIN. [Concomitant]
     Active Substance: PRAVASTATIN
     Indication: HYPOTHYROIDISM
  19. LEVOTHYROXINE. [Concomitant]
     Active Substance: LEVOTHYROXINE
     Indication: HYPOTHYROIDISM
  20. NOVOLIN 70/30 [Concomitant]
     Active Substance: INSULIN HUMAN
     Indication: TYPE 2 DIABETES MELLITUS
  21. CLOPIDOGREL [Concomitant]
     Active Substance: CLOPIDOGREL BISULFATE
     Indication: HYPOTHYROIDISM
  22. AMLODIPINE [Concomitant]
     Active Substance: AMLODIPINE BESYLATE
     Indication: HYPOTHYROIDISM
  23. GABAPENTIN. [Concomitant]
     Active Substance: GABAPENTIN
     Indication: NEUROPATHY PERIPHERAL
  24. LEVOTHYROXINE. [Concomitant]
     Active Substance: LEVOTHYROXINE
     Indication: TYPE 2 DIABETES MELLITUS
  25. CLOPIDOGREL [Concomitant]
     Active Substance: CLOPIDOGREL BISULFATE
     Indication: ANTICOAGULANT THERAPY
  26. AMLODIPINE [Concomitant]
     Active Substance: AMLODIPINE BESYLATE
     Indication: HYPERTENSION

REACTIONS (5)
  - Mobility decreased [Recovered/Resolved]
  - Neck pain [Recovered/Resolved]
  - Psoriasis [Recovered/Resolved]
  - Nerve injury [Recovering/Resolving]
  - Localised infection [Recovered/Resolved]

NARRATIVE: CASE EVENT DATE: 202101
